FAERS Safety Report 19503707 (Version 1)
Quarter: 2021Q3

REPORT INFORMATION
  Report Type: Spontaneous
  Country: US (occurrence: US)
  Receive Date: 20210707
  Receipt Date: 20210707
  Transmission Date: 20211014
  Serious: No
  Sender: FDA-Public Use
  Company Number: US-TAKEDA-2021TUS042212

PATIENT
  Age: 35 Year
  Sex: Female

DRUGS (3)
  1. METFORMIN [Concomitant]
     Active Substance: METFORMIN HYDROCHLORIDE
     Indication: DIABETES MELLITUS
     Dosage: UNK
     Route: 065
  2. TRINTELLIX [Suspect]
     Active Substance: VORTIOXETINE HYDROBROMIDE
     Indication: SCHIZOAFFECTIVE DISORDER BIPOLAR TYPE
     Dosage: 20 MILLIGRAM
     Route: 048
  3. VRAYLAR [Concomitant]
     Active Substance: CARIPRAZINE
     Indication: SCHIZOAFFECTIVE DISORDER BIPOLAR TYPE
     Dosage: 3 MILLIGRAM
     Route: 065

REACTIONS (5)
  - Accidental overdose [Unknown]
  - Illness [Unknown]
  - Product use in unapproved indication [Unknown]
  - Mania [Unknown]
  - Diarrhoea [Unknown]
